FAERS Safety Report 9797773 (Version 1)
Quarter: 2014Q1

REPORT INFORMATION
  Report Type: Spontaneous
  Country: US (occurrence: US)
  Receive Date: 20140106
  Receipt Date: 20140106
  Transmission Date: 20141002
  Serious: Yes (Other)
  Sender: FDA-Public Use
  Company Number: US-TARO PHARMACEUTICALS U.S.A., INC-2013SUN05318

PATIENT
  Age: 5 Year
  Sex: Female

DRUGS (4)
  1. IMIQUIMOD CREAM, 5% [Suspect]
     Indication: MOLLUSCUM CONTAGIOSUM
     Dosage: APPLIED OVER EACH LESION, THREE TIMES WEEKLY
     Route: 061
  2. IMIQUIMOD CREAM, 5% [Suspect]
     Dosage: APPLIED OVER EACH LESION,  EVERY NIGHTLY
     Route: 061
  3. CANDIDA ANTIGEN [Concomitant]
     Indication: MOLLUSCUM CONTAGIOSUM
     Dosage: 1 DF, DIVIDED BETWEEN TWO LESIONS
     Route: 065
  4. CANDIDA ANTIGEN [Concomitant]
     Dosage: 1 DF, DIVIDED BETWEEN TWO LESIONS
     Route: 065

REACTIONS (2)
  - Dermatitis psoriasiform [Recovered/Resolved]
  - Drug ineffective for unapproved indication [Unknown]
